FAERS Safety Report 12548420 (Version 1)
Quarter: 2016Q3

REPORT INFORMATION
  Report Type: Spontaneous
  Country: US (occurrence: None)
  Receive Date: 20160711
  Receipt Date: 20160711
  Transmission Date: 20161109
  Serious: No
  Sender: FDA-Public Use
  Company Number: None

PATIENT
  Sex: Female

DRUGS (1)
  1. LATANAPROST [Suspect]
     Active Substance: LATANOPROST

REACTIONS (2)
  - Feeling abnormal [None]
  - Surgery [None]
